FAERS Safety Report 7379094-X (Version None)
Quarter: 2011Q1

REPORT INFORMATION
  Report Type: 
  Country: None (occurrence: None)
  Receive Date: 20110328
  Receipt Date: 20110323
  Transmission Date: 20110831
  Serious: Yes (Disabling)
  Sender: FDA-Public Use
  Company Number: GB-PFIZER INC-2011065219

PATIENT
  Age: 46 Year
  Sex: Female

DRUGS (18)
  1. NITROFURANTOIN [Concomitant]
     Dosage: UNK
  2. PREGABALIN [Concomitant]
     Dosage: UNK
  3. GLANDOSANE [Concomitant]
     Dosage: UNK
  4. DICLOFENAC SODIUM [Suspect]
     Dosage: UNK
  5. CODEINE [Concomitant]
     Dosage: UNK
  6. DOCUSATE [Concomitant]
     Dosage: UNK
  7. MIRTAZAPINE [Concomitant]
     Dosage: 30 MG, UNK
  8. MOMETASONE [Concomitant]
     Dosage: UNK
  9. CYCLIZINE [Concomitant]
     Dosage: UNK
  10. SOLIFENACIN [Concomitant]
     Dosage: UNK
  11. MORPHINE SULFATE [Concomitant]
     Dosage: UNK
  12. SYMBICORT [Concomitant]
     Dosage: UNK
  13. VENLAFAXINE HCL [Suspect]
     Indication: DEPRESSION
     Dosage: UNK
     Route: 048
     Dates: start: 20090901, end: 20110301
  14. HYPROMELLOSE [Concomitant]
     Dosage: UNK
  15. LANSOPRAZOLE [Concomitant]
     Dosage: UNK
  16. MACROGOL [Concomitant]
     Dosage: UNK
  17. SALBUTAMOL [Concomitant]
     Route: 055
  18. XYLOMETAZOLINE [Concomitant]
     Dosage: UNK

REACTIONS (1)
  - MEDICATION RESIDUE [None]
